FAERS Safety Report 9299121 (Version 4)
Quarter: 2016Q4

REPORT INFORMATION
  Report Type: Spontaneous
  Country: US (occurrence: US)
  Receive Date: 20130520
  Receipt Date: 20161115
  Transmission Date: 20170207
  Serious: No
  Sender: FDA-Public Use
  Company Number: US-009507513-1305USA010617

PATIENT
  Sex: Male
  Weight: 109.12 kg

DRUGS (1)
  1. PROPECIA [Suspect]
     Active Substance: FINASTERIDE
     Indication: ALOPECIA
     Dosage: 1 MG, UNK
     Route: 048
     Dates: start: 199801, end: 199901

REACTIONS (10)
  - Epididymal cyst [Unknown]
  - Sexual dysfunction [Unknown]
  - Diarrhoea [Unknown]
  - Erectile dysfunction [Unknown]
  - Hepatic function abnormal [Unknown]
  - Libido decreased [Unknown]
  - Blood glucose increased [Unknown]
  - Hyperlipidaemia [Unknown]
  - Gastrooesophageal reflux disease [Unknown]
  - Blood pressure increased [Unknown]

NARRATIVE: CASE EVENT DATE: 2002
